FAERS Safety Report 6129284-9 (Version None)
Quarter: 2009Q1

REPORT INFORMATION
  Report Type: 
  Country: None (occurrence: None)
  Receive Date: 20090324
  Receipt Date: 20090323
  Transmission Date: 20090719
  Serious: Yes (Other)
  Sender: FDA-Public Use
  Company Number: US-BAYER-200910194BCC

PATIENT
  Age: 25 Year
  Sex: Male
  Weight: 68 kg

DRUGS (2)
  1. ALEVE (CAPLET) [Suspect]
     Indication: TOOTHACHE
     Dosage: 6 CAPLETS 2 TO 3 X DAILY
     Dates: start: 20090116, end: 20090119
  2. DARVOCET [Suspect]
     Indication: TOOTHACHE
     Dosage: TOOK 1 TO 2 THREE TIMES A DAY
     Dates: start: 20090116, end: 20090119

REACTIONS (4)
  - ABDOMINAL PAIN UPPER [None]
  - HAEMATEMESIS [None]
  - PALPITATIONS [None]
  - TOOTHACHE [None]
